FAERS Safety Report 10242043 (Version 3)
Quarter: 2014Q3

REPORT INFORMATION
  Report Type: Spontaneous
  Country: US (occurrence: US)
  Receive Date: 20140617
  Receipt Date: 20140724
  Transmission Date: 20150326
  Serious: Yes (Other)
  Sender: FDA-Public Use
  Company Number: US-ASTELLAS-2014US005015

PATIENT
  Age: 61 Year
  Sex: Female

DRUGS (3)
  1. VESICARE [Suspect]
     Active Substance: SOLIFENACIN SUCCINATE
     Dosage: 5 MG, UNK
     Route: 065
     Dates: start: 201311
  2. VESICARE [Suspect]
     Active Substance: SOLIFENACIN SUCCINATE
     Indication: MIXED INCONTINENCE
     Route: 065
     Dates: start: 20131014, end: 201311
  3. ANTIBIOTICS [Suspect]
     Active Substance: UNSPECIFIED INGREDIENT
     Indication: PRODUCT USED FOR UNKNOWN INDICATION
     Dosage: UNK, UNKNOWN FREQ.
     Route: 065

REACTIONS (19)
  - Electrocardiogram QT prolonged [Not Recovered/Not Resolved]
  - Off label use [Unknown]
  - Tendon injury [Unknown]
  - Ligament rupture [Unknown]
  - Pyrexia [Not Recovered/Not Resolved]
  - Urinary retention [Recovering/Resolving]
  - Infection [Unknown]
  - Heart rate increased [Unknown]
  - Calculus urinary [Unknown]
  - Muscle injury [Unknown]
  - Atrial fibrillation [Not Recovered/Not Resolved]
  - Dyspepsia [Not Recovered/Not Resolved]
  - Decreased appetite [Unknown]
  - Sinusitis [Recovered/Resolved]
  - Post-traumatic stress disorder [Unknown]
  - Asthenia [Unknown]
  - Cystitis [Recovered/Resolved]
  - Blood pressure increased [Recovering/Resolving]
  - Abdominal pain upper [Not Recovered/Not Resolved]

NARRATIVE: CASE EVENT DATE: 201310
